FAERS Safety Report 9869464 (Version 5)
Quarter: 2014Q2

REPORT INFORMATION
  Report Type: Spontaneous
  Country: US (occurrence: US)
  Receive Date: 20140205
  Receipt Date: 20140609
  Transmission Date: 20141212
  Serious: No
  Sender: FDA-Public Use
  Company Number: US-PFIZER INC-2014029423

PATIENT
  Age: 74 Year
  Sex: Female
  Weight: 62.13 kg

DRUGS (3)
  1. PREMARIN [Suspect]
     Indication: HOT FLUSH
     Dosage: 0.625 MG, UNK
     Route: 048
     Dates: start: 1984, end: 201312
  2. PREMARIN [Suspect]
     Dosage: UNK
  3. AMLODIPINE/BENAZEPRIL [Concomitant]
     Indication: BLOOD PRESSURE ABNORMAL
     Dosage: 5/10 MG, DAILY

REACTIONS (4)
  - Hyperhidrosis [Not Recovered/Not Resolved]
  - Crying [Not Recovered/Not Resolved]
  - Feeling hot [Unknown]
  - Drug ineffective [Unknown]
